FAERS Safety Report 25434127 (Version 1)
Quarter: 2025Q2

REPORT INFORMATION
  Report Type: Spontaneous
  Country: SK (occurrence: SK)
  Receive Date: 20250613
  Receipt Date: 20250613
  Transmission Date: 20250716
  Serious: Yes (Other)
  Sender: TEVA
  Company Number: SK-TEVA-VS-3340117

PATIENT
  Age: 12 Day
  Sex: Male

DRUGS (3)
  1. ARIPIPRAZOLE [Suspect]
     Active Substance: ARIPIPRAZOLE
     Indication: Product used for unknown indication
     Route: 063
  2. LAMOTRIGINE [Suspect]
     Active Substance: LAMOTRIGINE
     Indication: Product used for unknown indication
     Route: 063
  3. SERTRALINE [Suspect]
     Active Substance: SERTRALINE HYDROCHLORIDE
     Indication: Product used for unknown indication
     Route: 063

REACTIONS (6)
  - Gangrene [Unknown]
  - Exposure via breast milk [Unknown]
  - Pallor [Unknown]
  - Skin turgor decreased [Unknown]
  - Mucosal dryness [Unknown]
  - Livedo reticularis [Unknown]
